FAERS Safety Report 25848242 (Version 1)
Quarter: 2025Q3

REPORT INFORMATION
  Report Type: Spontaneous
  Country: US (occurrence: US)
  Receive Date: 20250925
  Receipt Date: 20250925
  Transmission Date: 20251021
  Serious: Yes (Death, Hospitalization)
  Sender: TEVA
  Company Number: US-TEVA-VS-3375324

PATIENT
  Age: 49 Year
  Sex: Female

DRUGS (1)
  1. FENTANYL [Suspect]
     Active Substance: FENTANYL
     Indication: Drug abuse
     Route: 065

REACTIONS (4)
  - Toxic leukoencephalopathy [Fatal]
  - Drug abuse [Fatal]
  - Cerebellar infarction [Fatal]
  - Cerebral infarction [Fatal]
